FAERS Safety Report 8747209 (Version 2)
Quarter: 2012Q4

REPORT INFORMATION
  Report Type: 
  Country: DK (occurrence: DK)
  Receive Date: 20120827
  Receipt Date: 20121023
  Transmission Date: 20130627
  Serious: Yes (Hospitalization)
  Sender: FDA-Public Use
  Company Number: DK-ELI_LILLY_AND_COMPANY-DK201208006519

PATIENT
  Age: 60 Year
  Sex: Female
  Weight: 88 kg

DRUGS (3)
  1. BYDUREON [Suspect]
     Indication: TYPE 2 DIABETES MELLITUS
     Dosage: 2 mg, weekly (1/W)
     Route: 058
     Dates: start: 20120508, end: 20120521
  2. METFORMIN [Concomitant]
     Indication: TYPE 2 DIABETES MELLITUS
     Dosage: UNK, unknown
     Dates: start: 1997
  3. SIMVASTATIN [Concomitant]
     Indication: HYPERCHOLESTEROLAEMIA
     Dosage: UNK, unknown
     Dates: start: 1999

REACTIONS (3)
  - Hydrocholecystis [Recovering/Resolving]
  - Cholecystitis [Recovering/Resolving]
  - Hospitalisation [Recovering/Resolving]
